FAERS Safety Report 6422692-8 (Version None)
Quarter: 2009Q4

REPORT INFORMATION
  Report Type: 
  Country: None (occurrence: None)
  Receive Date: 20091102
  Receipt Date: 20091023
  Transmission Date: 20100525
  Serious: Yes (Other)
  Sender: FDA-Public Use
  Company Number: US-JNJFOC-20091008005

PATIENT
  Sex: Male
  Weight: 28.58 kg

DRUGS (2)
  1. CONCERTA [Suspect]
     Indication: ATTENTION DEFICIT/HYPERACTIVITY DISORDER
     Route: 048
  2. ZYPREXA [Concomitant]
     Indication: DRUG THERAPY
     Route: 048

REACTIONS (1)
  - DYSPHEMIA [None]
